FAERS Safety Report 14612894 (Version 1)
Quarter: 2018Q1

REPORT INFORMATION
  Report Type: Report from Study
  Country: CO (occurrence: CO)
  Receive Date: 20180308
  Receipt Date: 20180308
  Transmission Date: 20180509
  Serious: Yes (Hospitalization)
  Sender: FDA-Public Use
  Company Number: CO-JNJFOC-20180136617

PATIENT
  Age: 59 Year
  Sex: Female
  Weight: 65 kg

DRUGS (1)
  1. RISPERDAL CONSTA [Suspect]
     Active Substance: RISPERIDONE
     Indication: BIPOLAR DISORDER
     Route: 030
     Dates: start: 20130915

REACTIONS (4)
  - Respiratory distress [Recovering/Resolving]
  - Drug dose omission [Unknown]
  - Cardiac disorder [Recovering/Resolving]
  - Thrombosis [Recovering/Resolving]

NARRATIVE: CASE EVENT DATE: 20180123
